FAERS Safety Report 5019581-2 (Version None)
Quarter: 2006Q2

REPORT INFORMATION
  Report Type: 
  Country: None (occurrence: None)
  Receive Date: 20060530
  Receipt Date: 20060523
  Transmission Date: 20061013
  Serious: Yes (Death, Hospitalization)
  Sender: FDA-Public Use
  Company Number: 200612068GDS

PATIENT
  Age: 60 Year
  Sex: Female
  Weight: 70 kg

DRUGS (7)
  1. SORAFENIB [Suspect]
     Indication: RENAL CELL CARCINOMA STAGE UNSPECIFIED
     Dosage: 400 MG, BID,ORAL
     Route: 048
     Dates: start: 20060323, end: 20060418
  2. SORAFENIB [Suspect]
     Dosage: 400 MG, BID , ORAL
     Route: 048
     Dates: start: 20060418, end: 20060516
  3. ATACAND [Concomitant]
  4. HYDROCHLOROTHIAZIDE [Concomitant]
  5. PRAVASTATIN [Concomitant]
  6. MORPHINE [Concomitant]
  7. DORMICUM [Concomitant]

REACTIONS (9)
  - DEHYDRATION [None]
  - DIARRHOEA [None]
  - DIVERTICULUM INTESTINAL [None]
  - HYPOTENSION [None]
  - LARGE INTESTINE PERFORATION [None]
  - PERITONITIS [None]
  - RENAL IMPAIRMENT [None]
  - SEPTIC SHOCK [None]
  - VOMITING [None]
